FAERS Safety Report 4935098-5 (Version None)
Quarter: 2006Q1

REPORT INFORMATION
  Report Type: 
  Country: None (occurrence: None)
  Receive Date: 20060302
  Receipt Date: 20060217
  Transmission Date: 20060701
  Serious: Yes (Hospitalization)
  Sender: FDA-Public Use
  Company Number: 2006025862

PATIENT
  Age: 56 Year
  Sex: Female

DRUGS (6)
  1. PREDNISOLONE [Suspect]
     Indication: RHEUMATOID ARTHRITIS
  2. ETANERCEPT (ETANERCEPT) [Suspect]
     Indication: RHEUMATOID ARTHRITIS
     Dosage: 50 MG (1 IN 1 WK), SUBCUTANEOUS
     Route: 058
     Dates: start: 20050513, end: 20050715
  3. INDOMETHACIN [Concomitant]
  4. LANSOPRAZOLE [Concomitant]
  5. AMLODIPINE BESILATE (AMLODIPINE) [Concomitant]
  6. METFORMIN HCL [Concomitant]

REACTIONS (1)
  - ENTEROCOLITIS [None]
